FAERS Safety Report 14426068 (Version 5)
Quarter: 2018Q3

REPORT INFORMATION
  Report Type: Spontaneous
  Country: US (occurrence: US)
  Receive Date: 20180123
  Receipt Date: 20180822
  Transmission Date: 20181010
  Serious: Yes (Death, Other)
  Sender: FDA-Public Use
  Company Number: US-BRISTOL-MYERS SQUIBB COMPANY-BMS-2018-004315

PATIENT
  Age: 99 Year
  Sex: Female
  Weight: 43.45 kg

DRUGS (2)
  1. ELIQUIS [Suspect]
     Active Substance: APIXABAN
     Indication: CEREBROVASCULAR ACCIDENT PROPHYLAXIS
     Route: 065
  2. ELIQUIS [Suspect]
     Active Substance: APIXABAN
     Indication: DEEP VEIN THROMBOSIS
     Dosage: 5 MG, BID
     Route: 048
     Dates: start: 2015

REACTIONS (9)
  - Death [Fatal]
  - Dementia [Unknown]
  - Anaemia [Unknown]
  - Hyperkalaemia [Unknown]
  - Blindness unilateral [Unknown]
  - Visual impairment [Unknown]
  - Hypoacusis [Unknown]
  - Cardiac failure congestive [Unknown]
  - Nausea [Unknown]

NARRATIVE: CASE EVENT DATE: 2018
